FAERS Safety Report 24575853 (Version 10)
Quarter: 2025Q2

REPORT INFORMATION
  Report Type: Report from Study
  Country: US (occurrence: US)
  Receive Date: 20241104
  Receipt Date: 20250610
  Transmission Date: 20250716
  Serious: Yes (Hospitalization, Other)
  Sender: TAKEDA
  Company Number: US-TAKEDA-2024TUS107752

PATIENT
  Age: 29 Year
  Sex: Female
  Weight: 130 kg

DRUGS (38)
  1. HUMAN IMMUNOGLOBULIN G [Suspect]
     Active Substance: HUMAN IMMUNOGLOBULIN G
     Indication: Autonomic neuropathy
     Dosage: 50 GRAM, 1/WEEK
     Dates: start: 20241024
  2. HUMAN IMMUNOGLOBULIN G [Suspect]
     Active Substance: HUMAN IMMUNOGLOBULIN G
     Dosage: 50 GRAM, 1/WEEK
  3. PANZYGA [Suspect]
     Active Substance: HUMAN IMMUNOGLOBULIN G
     Indication: Product used for unknown indication
  4. EPINEPHRINE [Concomitant]
     Active Substance: EPINEPHRINE
  5. STERILE WATER [Concomitant]
     Active Substance: WATER
  6. ACETAMINOPHEN [Concomitant]
     Active Substance: ACETAMINOPHEN
  7. DEPAKOTE ER [Concomitant]
     Active Substance: DIVALPROEX SODIUM
  8. OMEPRAZOLE [Concomitant]
     Active Substance: OMEPRAZOLE
  9. BUSPIRONE HCL [Concomitant]
     Active Substance: BUSPIRONE HYDROCHLORIDE
  10. VITAMIN D3 [Concomitant]
     Active Substance: CHOLECALCIFEROL
  11. TIZANIDINE HYDROCHLORIDE [Concomitant]
     Active Substance: TIZANIDINE HYDROCHLORIDE
  12. HEPARIN [Concomitant]
     Active Substance: HEPARIN SODIUM
  13. SODIUM CHLORIDE [Concomitant]
     Active Substance: SODIUM CHLORIDE
  14. UBRELVY [Concomitant]
     Active Substance: UBROGEPANT
  15. DEPLIN [Concomitant]
     Active Substance: LEVOMEFOLATE CALCIUM
  16. XYWAV [Concomitant]
     Active Substance: CALCIUM OXYBATE\MAGNESIUM OXYBATE\POTASSIUM OXYBATE\SODIUM OXYBATE
  17. CATHFLO ACTIVASE [Concomitant]
     Active Substance: ALTEPLASE
  18. LIDOCAINE [Concomitant]
     Active Substance: LIDOCAINE
  19. LISINOPRIL [Concomitant]
     Active Substance: LISINOPRIL
  20. DEPAKOTE [Concomitant]
     Active Substance: DIVALPROEX SODIUM
  21. VRAYLAR [Concomitant]
     Active Substance: CARIPRAZINE
  22. OLANZAPINE [Concomitant]
     Active Substance: OLANZAPINE
  23. DIPHENHYDRAMINE HYDROCHLORIDE [Concomitant]
     Active Substance: DIPHENHYDRAMINE HYDROCHLORIDE
  24. GABAPENTIN [Concomitant]
     Active Substance: GABAPENTIN
  25. MAGNESIUM [Concomitant]
     Active Substance: MAGNESIUM
  26. SOLU-MEDROL [Concomitant]
     Active Substance: METHYLPREDNISOLONE SODIUM SUCCINATE
  27. SODIUM CHLORIDE [Concomitant]
     Active Substance: SODIUM CHLORIDE
  28. METHYLPHENIDATE [Concomitant]
     Active Substance: METHYLPHENIDATE
  29. ONDANSETRON HYDROCHLORIDE [Concomitant]
     Active Substance: ONDANSETRON HYDROCHLORIDE
  30. LORATADINE [Concomitant]
     Active Substance: LORATADINE
  31. EMEND [Concomitant]
     Active Substance: APREPITANT
  32. MELATONIN [Concomitant]
     Active Substance: MELATONIN
  33. METHOCARBAMOL [Concomitant]
     Active Substance: METHOCARBAMOL
  34. HYDROXYZINE HYDROCHLORIDE [Concomitant]
     Active Substance: HYDROXYZINE HYDROCHLORIDE
  35. PRAZOSIN HYDROCHLORIDE [Concomitant]
     Active Substance: PRAZOSIN HYDROCHLORIDE
  36. VITAMIN B [Concomitant]
     Active Substance: VITAMIN B
  37. Algal oil DHA [Concomitant]
  38. MIRTAZAPINE [Concomitant]
     Active Substance: MIRTAZAPINE

REACTIONS (12)
  - Pneumonia [Unknown]
  - Psychotic disorder [Unknown]
  - Suicide attempt [Unknown]
  - Suicidal ideation [Unknown]
  - Illness [Unknown]
  - Product dose omission issue [Unknown]
  - Inappropriate schedule of product administration [Unknown]
  - Product use in unapproved indication [Unknown]
  - Medical device site infection [Unknown]
  - Obstruction [Unknown]
  - Headache [Unknown]
  - Pyrexia [Recovered/Resolved]

NARRATIVE: CASE EVENT DATE: 20241029
